FAERS Safety Report 6712619-3 (Version None)
Quarter: 2010Q2

REPORT INFORMATION
  Report Type: 
  Country: None (occurrence: None)
  Receive Date: 20100505
  Receipt Date: 20100505
  Transmission Date: 20101027
  Serious: Yes (Hospitalization)
  Sender: FDA-Public Use
  Company Number: None

PATIENT
  Sex: Female
  Weight: 68.0396 kg

DRUGS (1)
  1. DILTIAZEM [Suspect]
     Indication: CORONARY ARTERY DISEASE
     Dosage: 240 MG. 1 PER DAY ORAL
     Route: 048
     Dates: start: 20090901, end: 20091001

REACTIONS (5)
  - DIARRHOEA [None]
  - DYSSTASIA [None]
  - NAUSEA [None]
  - PRODUCT SUBSTITUTION ISSUE [None]
  - VERTIGO [None]
